FAERS Safety Report 18285855 (Version 1)
Quarter: 2020Q3

REPORT INFORMATION
  Report Type: Spontaneous
  Country: GB (occurrence: GB)
  Receive Date: 20200919
  Receipt Date: 20200919
  Transmission Date: 20201103
  Serious: Yes (Other)
  Sender: FDA-Public Use
  Company Number: GB-TEVA-2020-GB-1828300

PATIENT
  Age: 72 Year
  Sex: Male
  Weight: 108 kg

DRUGS (10)
  1. CALCIPOTRIOL [Concomitant]
     Active Substance: CALCIPOTRIENE
     Dosage: SPREAD THINLY ON THE AFFECTED SKIN ONLY.FOR EXT...
     Dates: start: 20191113
  2. DOVOBET [Concomitant]
     Active Substance: BETAMETHASONE\CALCIPOTRIENE
     Dosage: 1 DOSAGE FORMS DAILY; APPLY ONCE DAILY
     Dates: start: 20130107
  3. NAPROXEN. [Concomitant]
     Active Substance: NAPROXEN
     Dosage: TAKE ONE 3 TIMES/DAY:UNIT DOSE:3DOSAGEFORM
     Dates: start: 20200806
  4. CETRABEN EMOLLIENT CREAM [Concomitant]
     Dosage: USE AS DIRECTED
     Dates: start: 20191113
  5. UREA. [Concomitant]
     Active Substance: UREA
     Dosage: USE AS DIRECTED FOUR TIMES A DAY FOR 2 MONTHS:UNIT DOSE:4DOSAGEFORM
     Dates: start: 20191113
  6. QVAR [Concomitant]
     Active Substance: BECLOMETHASONE DIPROPIONATE
     Dosage: ONE PUFF TWICE A DAY:UNIT DOSE:2DOSAGEFORM
     Dates: start: 20161208
  7. LANSOPRAZOLE. [Suspect]
     Active Substance: LANSOPRAZOLE
     Dosage: 30MILLIGRAM
     Dates: start: 20200115
  8. SALBUTAMOL [Concomitant]
     Active Substance: ALBUTEROL
     Dosage: UNIT DOSE:2DOSAGEFORM
     Dates: start: 20130107
  9. OTOMIZE [Concomitant]
     Active Substance: DEXAMETHASONE\NEOMYCIN SULFATE
     Dosage: APPLY ONE SPRAY THREE TIMES A DAY:UNIT DOSE:3DOSAGEFORM
     Dates: start: 20200609, end: 20200707
  10. ENSTILAR [Concomitant]
     Active Substance: BETAMETHASONE DIPROPIONATE\CALCIPOTRIENE HYDRATE
     Dosage: APPLY ONCE DAILY FOR 4 WEEKS THEN ALTERNATE DAY...
     Dates: start: 20191113

REACTIONS (2)
  - Pharyngeal paraesthesia [Unknown]
  - Cough [Recovered/Resolved]

NARRATIVE: CASE EVENT DATE: 20200115
